FAERS Safety Report 13213940 (Version 1)
Quarter: 2017Q1

REPORT INFORMATION
  Report Type: Spontaneous
  Country: US (occurrence: US)
  Receive Date: 20170210
  Receipt Date: 20170210
  Transmission Date: 20170428
  Serious: Yes (Hospitalization)
  Sender: FDA-Public Use
  Company Number: US-TEIKOKU PHARMA USA-TPU2017-00086

PATIENT
  Age: 69 Year
  Sex: Male
  Weight: 88.53 kg

DRUGS (1)
  1. LIDOCAINE PATCH [Suspect]
     Active Substance: LIDOCAINE
     Indication: NECK PAIN
     Dosage: 1 PATCH ON THE NECK PAIN 12 HOURS ON THEN OFF FOR 12 HOURS
     Route: 061
     Dates: start: 2014

REACTIONS (2)
  - Blood glucose decreased [Not Recovered/Not Resolved]
  - Road traffic accident [Unknown]

NARRATIVE: CASE EVENT DATE: 201603
